FAERS Safety Report 12706961 (Version 4)
Quarter: 2017Q1

REPORT INFORMATION
  Report Type: Report from Study
  Country: FR (occurrence: FR)
  Receive Date: 20160901
  Receipt Date: 20170105
  Transmission Date: 20170428
  Serious: Yes (Other)
  Sender: FDA-Public Use
  Company Number: PHHY2016FR086953

PATIENT
  Age: 55 Year
  Sex: Female
  Weight: 100 kg

DRUGS (2)
  1. GILENYA [Suspect]
     Active Substance: FINGOLIMOD HYDROCHLORIDE
     Indication: MULTIPLE SCLEROSIS
     Dosage: 0.5 MG, QD
     Route: 048
     Dates: start: 20140909, end: 20160509
  2. GILENYA [Suspect]
     Active Substance: FINGOLIMOD HYDROCHLORIDE
     Dosage: 0.5 MG, QD
     Route: 048
     Dates: start: 20160803

REACTIONS (11)
  - Supraventricular extrasystoles [Unknown]
  - Blood pressure increased [Unknown]
  - Bradycardia [Recovered/Resolved]
  - Snoring [Unknown]
  - Headache [Unknown]
  - Nocturia [Unknown]
  - Chest pain [Unknown]
  - Bundle branch block left [Unknown]
  - Dilatation atrial [Unknown]
  - Apnoea [Unknown]
  - Bundle branch block right [Unknown]

NARRATIVE: CASE EVENT DATE: 20141201
